FAERS Safety Report 18258013 (Version 1)
Quarter: 2020Q3

REPORT INFORMATION
  Report Type: Spontaneous
  Country: US (occurrence: US)
  Receive Date: 20200911
  Receipt Date: 20200911
  Transmission Date: 20201103
  Serious: Yes (Hospitalization)
  Sender: FDA-Public Use
  Company Number: None

PATIENT
  Age: 18 Year
  Sex: Male
  Weight: 102.2 kg

DRUGS (4)
  1. REMDESIVIR. [Suspect]
     Active Substance: REMDESIVIR
     Route: 042
  2. DEXAMETHASONE 6MG PO DAILY [Concomitant]
     Active Substance: DEXAMETHASONE
     Dates: start: 20200903, end: 20200906
  3. REMDESIVIR. [Suspect]
     Active Substance: REMDESIVIR
     Indication: COVID-19
     Dosage: ?          OTHER FREQUENCY:ONCE;?
     Route: 042
     Dates: start: 20200902, end: 20200905
  4. ENOXAPARIN 40 MG SQ DAILY [Concomitant]
     Dates: start: 20200902, end: 20200905

REACTIONS (1)
  - Alanine aminotransferase increased [None]

NARRATIVE: CASE EVENT DATE: 20200905
